FAERS Safety Report 9626853 (Version 1)
Quarter: 2013Q4

REPORT INFORMATION
  Report Type: Spontaneous
  Country: US (occurrence: None)
  Receive Date: 20131011
  Receipt Date: 20131011
  Transmission Date: 20140711
  Serious: Yes (Death)
  Sender: FDA-Public Use
  Company Number: 2013AP008513

PATIENT
  Age: 49 Year
  Sex: Male

DRUGS (3)
  1. CITALOPRAM HYDROBROMIDE [Suspect]
     Route: 048
  2. OXYCODONE [Suspect]
     Route: 048
  3. MORPHINE [Suspect]
     Route: 048

REACTIONS (1)
  - Cardio-respiratory arrest [None]
